FAERS Safety Report 6067294-0 (Version None)
Quarter: 2009Q1

REPORT INFORMATION
  Report Type: 
  Country: None (occurrence: None)
  Receive Date: 20090203
  Receipt Date: 20090124
  Transmission Date: 20090719
  Serious: Yes (Hospitalization)
  Sender: FDA-Public Use
  Company Number: ADE2009-0424

PATIENT
  Age: 49 Year
  Sex: Female

DRUGS (9)
  1. CEFDINIR [Suspect]
     Indication: CLOSTRIDIUM DIFFICILE COLITIS
     Dosage: 300 MG-QD-ORAL
     Route: 048
     Dates: start: 20080221, end: 20080228
  2. INHALED HUMAN INSULIN [Suspect]
     Indication: DIABETES MELLITUS
     Dosage: 16 MG, QD, ORAL
     Route: 048
     Dates: start: 20020815, end: 20080229
  3. FACTIVE [Suspect]
     Indication: CLOSTRIDIUM DIFFICILE COLITIS
     Dosage: QD, ORAL
     Route: 048
     Dates: start: 20080218, end: 20080220
  4. SYNTHROID [Concomitant]
  5. ZOCOR [Concomitant]
  6. LEXAPRO [Concomitant]
  7. IBUPROFEN [Concomitant]
  8. FLAGYL [Concomitant]
  9. LANTUS [Concomitant]

REACTIONS (5)
  - BLOOD GLUCOSE INCREASED [None]
  - CLOSTRIDIUM DIFFICILE COLITIS [None]
  - DEHYDRATION [None]
  - DIABETIC KETOACIDOSIS [None]
  - HYPOGLYCAEMIA [None]
